FAERS Safety Report 6660139-7 (Version None)
Quarter: 2010Q1

REPORT INFORMATION
  Report Type: 
  Country: None (occurrence: None)
  Receive Date: 20100331
  Receipt Date: 20100302
  Transmission Date: 20100710
  Serious: No
  Sender: FDA-Public Use
  Company Number: 2009BI013799

PATIENT
  Sex: Female
  Weight: 57 kg

DRUGS (8)
  1. TYSABRI [Suspect]
     Indication: MULTIPLE SCLEROSIS
     Route: 042
     Dates: start: 20080201
  2. FIORINAL [Concomitant]
     Indication: FIBROMYALGIA
  3. LAMICTAL CD [Concomitant]
     Indication: FIBROMYALGIA
  4. LAMICTAL CD [Concomitant]
     Indication: COMPLEX REGIONAL PAIN SYNDROME
  5. TEGRETOL [Concomitant]
     Indication: FIBROMYALGIA
  6. TEGRETOL [Concomitant]
     Indication: COMPLEX REGIONAL PAIN SYNDROME
  7. CALCIUM [Concomitant]
     Indication: OSTEOPOROSIS
  8. ELAVIL [Concomitant]
     Indication: DEPRESSION

REACTIONS (20)
  - ARTHRITIS [None]
  - BALANCE DISORDER [None]
  - BLOOD IMMUNOGLOBULIN A DECREASED [None]
  - BLOOD IMMUNOGLOBULIN G DECREASED [None]
  - BLOOD IMMUNOGLOBULIN M DECREASED [None]
  - COMPLEX REGIONAL PAIN SYNDROME [None]
  - CYSTITIS [None]
  - DRUG ERUPTION [None]
  - DYSSTASIA [None]
  - FALL [None]
  - FUNGAL INFECTION [None]
  - MUSCULAR WEAKNESS [None]
  - NEUROPATHY PERIPHERAL [None]
  - PAIN IN EXTREMITY [None]
  - RIB FRACTURE [None]
  - STERNAL FRACTURE [None]
  - THROMBOSIS [None]
  - TOOTH INFECTION [None]
  - VENOUS INSUFFICIENCY [None]
  - WEIGHT DECREASED [None]
